FAERS Safety Report 9571011 (Version 1)
Quarter: 2013Q4

REPORT INFORMATION
  Report Type: Spontaneous
  Country: US (occurrence: US)
  Receive Date: 20131001
  Receipt Date: 20131001
  Transmission Date: 20140711
  Serious: No
  Sender: FDA-Public Use
  Company Number: US-009507513-1310USA000059

PATIENT
  Sex: Male

DRUGS (1)
  1. DULERA [Suspect]
     Dosage: 200 MICROGRAM, 2 INHALATIONS, BID
     Route: 055
     Dates: start: 20130922, end: 20130925

REACTIONS (2)
  - Tachycardia [Recovered/Resolved]
  - Insomnia [Recovered/Resolved]
